FAERS Safety Report 18706998 (Version 1)
Quarter: 2021Q1

REPORT INFORMATION
  Report Type: Spontaneous
  Country: US (occurrence: US)
  Receive Date: 20210106
  Receipt Date: 20210106
  Transmission Date: 20210419
  Serious: Yes (Disabling, Other)
  Sender: FDA-Public Use
  Company Number: None

PATIENT
  Age: 44 Year
  Sex: Female
  Weight: 75.15 kg

DRUGS (8)
  1. ELEQUIS [Concomitant]
  2. TEPEZZA [Suspect]
     Active Substance: TEPROTUMUMAB-TRBW
     Indication: ENDOCRINE OPHTHALMOPATHY
     Dosage: ?          OTHER FREQUENCY:EVERY 3 WEEKS,  8;?
     Route: 042
     Dates: start: 20200403, end: 20200915
  3. PRAZOSIN. [Concomitant]
     Active Substance: PRAZOSIN
  4. EQUALITY [Concomitant]
  5. MULTI VITAMIN [Concomitant]
     Active Substance: VITAMINS
  6. UBRELVY [Concomitant]
     Active Substance: UBROGEPANT
  7. TORODOL [Concomitant]
  8. CYMBALTA [Concomitant]
     Active Substance: DULOXETINE HYDROCHLORIDE

REACTIONS (4)
  - Gastrectomy [None]
  - Alopecia [None]
  - Fatigue [None]
  - Hyperglycaemia [None]

NARRATIVE: CASE EVENT DATE: 20201215
